FAERS Safety Report 13736690 (Version 1)
Quarter: 2017Q3

REPORT INFORMATION
  Report Type: Spontaneous
  Country: GB (occurrence: GB)
  Receive Date: 20170710
  Receipt Date: 20170710
  Transmission Date: 20171127
  Serious: Yes (Hospitalization)
  Sender: FDA-Public Use
  Company Number: GB-009507513-1707GBR000652

PATIENT
  Age: 59 Year
  Sex: Male
  Weight: 75 kg

DRUGS (2)
  1. SYMBICORT [Concomitant]
     Active Substance: BUDESONIDE\FORMOTEROL FUMARATE DIHYDRATE
  2. MONTELUKAST SODIUM. [Suspect]
     Active Substance: MONTELUKAST SODIUM
     Indication: ASTHMA
     Route: 048
     Dates: start: 20170106, end: 20170618

REACTIONS (1)
  - Tendon rupture [Unknown]

NARRATIVE: CASE EVENT DATE: 20170616
